FAERS Safety Report 19653821 (Version 3)
Quarter: 2021Q3

REPORT INFORMATION
  Report Type: Spontaneous
  Country: JP (occurrence: JP)
  Receive Date: 20210803
  Receipt Date: 20210904
  Transmission Date: 20211014
  Serious: Yes (Hospitalization, Other)
  Sender: FDA-Public Use
  Company Number: JP-TEVA-2021-JP-1925960

PATIENT
  Age: 71 Year
  Sex: Male

DRUGS (9)
  1. POLATUZUMAB VEDOTIN. [Suspect]
     Active Substance: POLATUZUMAB VEDOTIN
     Dosage: (CYCLIC) (THIRD CYCLE)
     Route: 041
     Dates: start: 202107
  2. POLATUZUMAB VEDOTIN. [Suspect]
     Active Substance: POLATUZUMAB VEDOTIN
     Indication: DIFFUSE LARGE B-CELL LYMPHOMA
     Dosage: (CYCLIC) (FIRST CYCLE)
     Route: 041
     Dates: start: 20210603
  3. TREAKISYM [Suspect]
     Active Substance: BENDAMUSTINE HYDROCHLORIDE
     Dosage: (2ND CYCLE)
     Route: 041
     Dates: start: 20210701
  4. POLATUZUMAB VEDOTIN. [Suspect]
     Active Substance: POLATUZUMAB VEDOTIN
     Dosage: (SECOND CYCLE)
     Route: 041
     Dates: start: 20210701
  5. RITUXAN [Suspect]
     Active Substance: RITUXIMAB
     Indication: DIFFUSE LARGE B-CELL LYMPHOMA
     Dosage: (CYCLIC) (1ST CYCLE)
     Route: 041
     Dates: start: 20210602, end: 20210602
  6. RITUXAN [Suspect]
     Active Substance: RITUXIMAB
     Dosage: (THIRD CYCLE)
     Route: 041
     Dates: start: 202107
  7. TREAKISYM [Suspect]
     Active Substance: BENDAMUSTINE HYDROCHLORIDE
     Dosage: (CYCLIC) (3RD CYCLE)
     Route: 041
     Dates: start: 20210714, end: 20210715
  8. RITUXAN [Suspect]
     Active Substance: RITUXIMAB
     Dosage: (2ND CYCLE)
     Route: 041
     Dates: start: 20210701
  9. TREAKISYM [Suspect]
     Active Substance: BENDAMUSTINE HYDROCHLORIDE
     Indication: DIFFUSE LARGE B-CELL LYMPHOMA
     Dosage: (CYCLIC) (1ST CYCLE)
     Route: 041
     Dates: start: 20210603, end: 20210604

REACTIONS (8)
  - Hypogammaglobulinaemia [Recovered/Resolved]
  - Device related infection [Unknown]
  - Product use in unapproved indication [Unknown]
  - Cytomegalovirus viraemia [Not Recovered/Not Resolved]
  - Pyrexia [Recovered/Resolved]
  - Platelet count decreased [Recovered/Resolved]
  - Erythema [Recovered/Resolved]
  - Fungal infection [Recovered/Resolved]

NARRATIVE: CASE EVENT DATE: 20210603
